FAERS Safety Report 5334735-3 (Version None)
Quarter: 2007Q2

REPORT INFORMATION
  Report Type: 
  Country: None (occurrence: None)
  Receive Date: 20070525
  Receipt Date: 20070516
  Transmission Date: 20071010
  Serious: Yes (Other)
  Sender: FDA-Public Use
  Company Number: US-JNJFOC-20070504552

PATIENT
  Sex: Female
  Weight: 66.68 kg

DRUGS (6)
  1. TOPAMAX [Suspect]
     Indication: BIPOLAR I DISORDER
     Route: 048
  2. TOPAMAX [Suspect]
     Indication: DEPRESSION
     Route: 048
  3. TOPAMAX [Suspect]
     Indication: MIGRAINE PROPHYLAXIS
     Route: 048
  4. PROZAC [Concomitant]
     Indication: OBSESSIVE-COMPULSIVE DISORDER
     Route: 048
  5. PROZAC [Concomitant]
     Indication: DEPRESSION
     Route: 048
  6. KLONOPIN [Concomitant]
     Indication: DRUG USE FOR UNKNOWN INDICATION
     Route: 048

REACTIONS (14)
  - AGGRESSION [None]
  - DISTURBANCE IN ATTENTION [None]
  - EATING DISORDER [None]
  - HALLUCINATION [None]
  - INSOMNIA [None]
  - MANIA [None]
  - MEMORY IMPAIRMENT [None]
  - OBSESSIVE-COMPULSIVE DISORDER [None]
  - PERSONALITY CHANGE [None]
  - POLYMENORRHOEA [None]
  - PSYCHOMOTOR HYPERACTIVITY [None]
  - REPETITIVE SPEECH [None]
  - SCHIZOPHRENIFORM DISORDER [None]
  - SPEECH DISORDER [None]
